FAERS Safety Report 5396385-2 (Version None)
Quarter: 2007Q3

REPORT INFORMATION
  Report Type: 
  Country: None (occurrence: None)
  Receive Date: 20070725
  Receipt Date: 20070713
  Transmission Date: 20080115
  Serious: Yes (Other)
  Sender: FDA-Public Use
  Company Number: ES-AMGEN-US165061

PATIENT
  Age: 30 Year
  Sex: Male

DRUGS (1)
  1. ENBREL [Suspect]
     Indication: ANKYLOSING SPONDYLITIS
     Route: 058
     Dates: start: 20050520, end: 20051028

REACTIONS (3)
  - ACQUIRED EPIDERMOLYSIS BULLOSA [None]
  - IMPETIGO [None]
  - PHARYNGOTONSILLITIS [None]
